FAERS Safety Report 17519228 (Version 1)
Quarter: 2020Q1

REPORT INFORMATION
  Report Type: Spontaneous
  Country: US (occurrence: US)
  Receive Date: 20200310
  Receipt Date: 20200310
  Transmission Date: 20200409
  Serious: No
  Sender: FDA-Public Use
  Company Number: US-ALLERGAN-1913970US

PATIENT
  Age: 76 Year
  Sex: Female
  Weight: 58.05 kg

DRUGS (7)
  1. ESTRACE [Suspect]
     Active Substance: ESTRADIOL
     Indication: DYSURIA
     Dosage: 1 G, THREE TIMES A WEEK
     Route: 067
     Dates: start: 20190322
  2. UNSPECIFIED CHOLESTEROL MEDICATION [Concomitant]
     Active Substance: UNSPECIFIED INGREDIENT
     Indication: BLOOD CHOLESTEROL INCREASED
     Dosage: UNK, QOD
  3. VITAMIN D                          /00107901/ [Concomitant]
     Active Substance: ERGOCALCIFEROL
     Indication: VITAMIN D DEFICIENCY
  4. COCONUT OIL [Concomitant]
     Active Substance: COCONUT OIL
     Indication: VULVOVAGINAL BURNING SENSATION
     Dosage: UNK, PRN
     Route: 061
  5. METFORMIN [Concomitant]
     Active Substance: METFORMIN HYDROCHLORIDE
     Indication: DIABETES MELLITUS
     Dosage: UNK, BID
  6. UNSPECIFIED BLOOD PRESSURE MEDICATION [Concomitant]
     Active Substance: UNSPECIFIED INGREDIENT
     Indication: HYPERTENSION
  7. UNSPECIFIED VAGINAL MEDICATION [Concomitant]
     Indication: VAGINAL INFECTION
     Route: 067

REACTIONS (2)
  - Drug delivery system issue [Unknown]
  - Wrong technique in product usage process [Unknown]
